FAERS Safety Report 13339714 (Version 13)
Quarter: 2020Q3

REPORT INFORMATION
  Report Type: Spontaneous
  Country: US (occurrence: US)
  Receive Date: 20170315
  Receipt Date: 20200804
  Transmission Date: 20201102
  Serious: Yes (Other)
  Sender: FDA-Public Use
  Company Number: US-BIOMARINAP-US-2017-113104

PATIENT
  Age: 17 Year
  Sex: Female
  Weight: 38.1 kg

DRUGS (3)
  1. BENADRYL [Concomitant]
     Active Substance: DIPHENHYDRAMINE HYDROCHLORIDE
     Indication: PREMEDICATION
     Dosage: 50 MG, UNK
  2. ALDURAZYME [Suspect]
     Active Substance: LARONIDASE
     Dosage: 0.61 MILLIGRAM/KILOGRAM, QW
     Route: 041
  3. ALDURAZYME [Suspect]
     Active Substance: LARONIDASE
     Indication: MUCOPOLYSACCHARIDOSIS
     Dosage: 0.61 MILLIGRAM/KILOGRAM, QW
     Route: 041
     Dates: start: 20161014

REACTIONS (9)
  - Therapy interrupted [Unknown]
  - Malaise [Unknown]
  - Chills [Unknown]
  - Intervertebral disc operation [Unknown]
  - Exposure via breast milk [Unknown]
  - Weight increased [Unknown]
  - Exposure during pregnancy [Unknown]
  - Weight decreased [Unknown]
  - Pyrexia [Unknown]

NARRATIVE: CASE EVENT DATE: 20171023
